FAERS Safety Report 8073523-4 (Version None)
Quarter: 2012Q1

REPORT INFORMATION
  Report Type: 
  Country: None (occurrence: None)
  Receive Date: 20120126
  Receipt Date: 20120119
  Transmission Date: 20120608
  Serious: Yes (Other)
  Sender: FDA-Public Use
  Company Number: US-BAYER-2012-007940

PATIENT
  Age: 45 Year
  Sex: Female
  Weight: 95 kg

DRUGS (1)
  1. ALEVE (CAPLET) [Suspect]
     Dosage: 2 CAPLETS AT ONE USE; NEXT USE TOOK ONE THEN ONE M
     Route: 048
     Dates: start: 20111201, end: 20111201

REACTIONS (4)
  - LIP SWELLING [None]
  - URTICARIA [None]
  - HYPERSENSITIVITY [None]
  - SWELLING FACE [None]
